FAERS Safety Report 8935283 (Version 17)
Quarter: 2017Q3

REPORT INFORMATION
  Report Type: Spontaneous
  Country: CA (occurrence: CA)
  Receive Date: 20121129
  Receipt Date: 20170720
  Transmission Date: 20171128
  Serious: Yes (Other)
  Sender: FDA-Public Use
  Company Number: CA-GLAXOSMITHKLINE-A1002754A

PATIENT
  Age: 31 Year
  Sex: Female

DRUGS (8)
  1. FLUOXETINE HYDROCHLORIDE(TRIZAC) [Concomitant]
     Indication: PRODUCT USED FOR UNKNOWN INDICATION
     Dosage: UNK
  2. BENLYSTA [Suspect]
     Active Substance: BELIMUMAB
     Indication: SYSTEMIC LUPUS ERYTHEMATOSUS
     Dosage: 800MG AT WEEK 0, 2,4 AND EVERY 4 WEEKS
     Route: 042
     Dates: start: 20121113
  3. PLAQUENIL [Concomitant]
     Active Substance: HYDROXYCHLOROQUINE SULFATE
     Dosage: 200 ML, UNK
  4. METHOTREXATE. [Concomitant]
     Active Substance: METHOTREXATE
     Indication: PRODUCT USED FOR UNKNOWN INDICATION
     Dosage: UNK
  5. PREDNISONE. [Concomitant]
     Active Substance: PREDNISONE
     Indication: PRODUCT USED FOR UNKNOWN INDICATION
     Dosage: 4 MG, DIE
     Route: 048
  6. PLAQUENIL [Concomitant]
     Active Substance: HYDROXYCHLOROQUINE SULFATE
     Indication: PRODUCT USED FOR UNKNOWN INDICATION
     Dosage: 100 MG, DIE
     Route: 048
  7. BENLYSTA [Suspect]
     Active Substance: BELIMUMAB
     Dosage: UNK
     Dates: end: 201611
  8. BENLYSTA [Suspect]
     Active Substance: BELIMUMAB
     Dosage: 800 MG, UNK
     Route: 042
     Dates: start: 20150727

REACTIONS (46)
  - Chest pain [Unknown]
  - Arthralgia [Recovering/Resolving]
  - Rash [Unknown]
  - Constipation [Unknown]
  - Abdominal pain [Unknown]
  - Cellulitis [Unknown]
  - Tooth abscess [Recovered/Resolved]
  - Gastroenteritis [Unknown]
  - Movement disorder [Unknown]
  - Malaise [Unknown]
  - Dysphagia [Unknown]
  - Asthma [Recovering/Resolving]
  - Pain in extremity [Unknown]
  - Pericarditis [Unknown]
  - Pancreatitis [Unknown]
  - Sinusitis [Not Recovered/Not Resolved]
  - Back pain [Unknown]
  - Swelling [Unknown]
  - Neuropathy peripheral [Unknown]
  - Photosensitivity reaction [Unknown]
  - Pneumonia [Recovering/Resolving]
  - Mouth ulceration [Unknown]
  - Dyspepsia [Recovering/Resolving]
  - Systemic lupus erythematosus [Unknown]
  - Fatigue [Not Recovered/Not Resolved]
  - Drug intolerance [Unknown]
  - Aphonia [Unknown]
  - Central nervous system lupus [Unknown]
  - Xerophthalmia [Unknown]
  - Rectal haemorrhage [Unknown]
  - Weight decreased [Unknown]
  - Cough [Unknown]
  - Fibromyalgia [Unknown]
  - Influenza like illness [Unknown]
  - Dyspnoea exertional [Unknown]
  - Palpitations [Unknown]
  - Peripheral swelling [Unknown]
  - Raynaud^s phenomenon [Unknown]
  - Pericardial effusion [Unknown]
  - Sinus tachycardia [Unknown]
  - Pain [Not Recovered/Not Resolved]
  - Insomnia [Not Recovered/Not Resolved]
  - Pyrexia [Recovering/Resolving]
  - Swelling face [Unknown]
  - Dry mouth [Unknown]
  - Drug ineffective [Unknown]

NARRATIVE: CASE EVENT DATE: 20121113
